FAERS Safety Report 21315152 (Version 1)
Quarter: 2022Q3

REPORT INFORMATION
  Report Type: Spontaneous
  Country: US (occurrence: US)
  Receive Date: 20220909
  Receipt Date: 20220909
  Transmission Date: 20221026
  Serious: Yes (Other)
  Sender: FDA-Public Use
  Company Number: US-PFIZER INC-PV202200059920

PATIENT
  Sex: Female

DRUGS (1)
  1. MINIPRESS [Interacting]
     Active Substance: PRAZOSIN HYDROCHLORIDE
     Dosage: UNK

REACTIONS (11)
  - Myocardial infarction [Unknown]
  - Pneumonia [Unknown]
  - Anaemia [Unknown]
  - Oedema [Unknown]
  - Throat irritation [Unknown]
  - Weight fluctuation [Unknown]
  - Abdominal pain [Unknown]
  - Abscess [Unknown]
  - Anxiety [Unknown]
  - Clostridium test positive [Unknown]
  - Drug interaction [Unknown]
